FAERS Safety Report 8062890-3 (Version None)
Quarter: 2012Q1

REPORT INFORMATION
  Report Type: 
  Country: None (occurrence: None)
  Receive Date: 20120123
  Receipt Date: 20120123
  Transmission Date: 20120608
  Serious: No
  Sender: FDA-Public Use
  Company Number: None

PATIENT
  Age: 53 Year
  Sex: Female
  Weight: 73.935 kg

DRUGS (1)
  1. ATELVIA [Suspect]
     Indication: BONE DISORDER
     Dosage: 1
     Route: 048
     Dates: start: 20111213, end: 20111213

REACTIONS (7)
  - ABDOMINAL PAIN UPPER [None]
  - BACK PAIN [None]
  - ACTIVITIES OF DAILY LIVING IMPAIRED [None]
  - NAUSEA [None]
  - CHEST PAIN [None]
  - GAIT DISTURBANCE [None]
  - MUSCULOSKELETAL PAIN [None]
